FAERS Safety Report 5642950-4 (Version None)
Quarter: 2008Q1

REPORT INFORMATION
  Report Type: 
  Country: None (occurrence: None)
  Receive Date: 20080226
  Receipt Date: 20080214
  Transmission Date: 20080703
  Serious: Yes (Hospitalization, Other)
  Sender: FDA-Public Use
  Company Number: MEDI-0006574

PATIENT
  Age: 43 Week
  Sex: Female

DRUGS (4)
  1. SYNAGIS [Suspect]
     Dosage: INTRAMUSCULAR
     Route: 030
  2. PNEUMOCOCCUS VACCINE (PNEUMOCOCCAL VACCINE) [Concomitant]
  3. DIPHTERIA, TETANUS, WHOOPING COUGH AND POLIOMYELITIS (DIPHTHERIA, PERT [Concomitant]
  4. HEMOPHILUS INFLUENZA VACCINE (INFLUENZA VACCINE) [Concomitant]

REACTIONS (4)
  - APNOEA [None]
  - BRADYCARDIA [None]
  - MALAISE [None]
  - VACCINATION COMPLICATION [None]
